FAERS Safety Report 14543748 (Version 1)
Quarter: 2018Q1

REPORT INFORMATION
  Report Type: Spontaneous
  Country: US (occurrence: US)
  Receive Date: 20180216
  Receipt Date: 20180216
  Transmission Date: 20180509
  Serious: No
  Sender: FDA-Public Use
  Company Number: None

PATIENT
  Age: 56 Year
  Sex: Female
  Weight: 81.19 kg

DRUGS (1)
  1. VALSARTAN 80MG [Suspect]
     Active Substance: VALSARTAN
     Indication: HYPERTENSION
     Dosage: 80MG-240MG QDAY ORAL
     Route: 048
     Dates: start: 20171218

REACTIONS (3)
  - Drug ineffective [None]
  - Product formulation issue [None]
  - Extra dose administered [None]

NARRATIVE: CASE EVENT DATE: 20171218
